FAERS Safety Report 7769997-6 (Version None)
Quarter: 2011Q3

REPORT INFORMATION
  Report Type: 
  Country: None (occurrence: None)
  Receive Date: 20110922
  Receipt Date: 20100825
  Transmission Date: 20111222
  Serious: No
  Sender: FDA-Public Use
  Company Number: US-ASTRAZENECA-2008UW01214

PATIENT
  Age: 11869 Day
  Sex: Female
  Weight: 127 kg

DRUGS (10)
  1. NAPROXEN [Concomitant]
     Route: 048
     Dates: start: 20060822
  2. BUPROPION HCL [Concomitant]
     Dates: start: 20060721
  3. SINGULAIR [Concomitant]
     Route: 048
     Dates: start: 20060822
  4. REMERON [Concomitant]
     Dates: start: 20070702
  5. DETROL LA [Concomitant]
     Route: 048
     Dates: start: 20060822
  6. AMITRIPTYLINE HCL [Concomitant]
     Route: 048
     Dates: start: 20060822
  7. SEROQUEL [Suspect]
     Indication: DEPRESSION
     Dosage: 50 MG - 100 MG
     Route: 048
     Dates: start: 20060524, end: 20060801
  8. ABILIFY [Concomitant]
     Dosage: STRENGTH: 5-10 MG DOSE: 10 MG DAILY
     Dates: start: 20060721
  9. SEROQUEL [Suspect]
     Indication: BIPOLAR DISORDER
     Dosage: 50 MG - 100 MG
     Route: 048
     Dates: start: 20060524, end: 20060801
  10. NEXIUM [Concomitant]
     Route: 048
     Dates: start: 20060822

REACTIONS (6)
  - TYPE 2 DIABETES MELLITUS [None]
  - LOSS OF CONSCIOUSNESS [None]
  - DIABETES MELLITUS INADEQUATE CONTROL [None]
  - DIABETIC COMPLICATION [None]
  - OBESITY [None]
  - HYPERGLYCAEMIA [None]
